FAERS Safety Report 7800971-7 (Version None)
Quarter: 2011Q4

REPORT INFORMATION
  Report Type: 
  Country: None (occurrence: None)
  Receive Date: 20111007
  Receipt Date: 20111004
  Transmission Date: 20120403
  Serious: Yes (Hospitalization)
  Sender: FDA-Public Use
  Company Number: FI-AMGEN-FINSP2011051292

PATIENT
  Sex: Female

DRUGS (1)
  1. PROLIA [Suspect]
     Indication: PERIPROSTHETIC OSTEOLYSIS

REACTIONS (3)
  - MUSCLE SPASMS [None]
  - BLOOD CALCIUM DECREASED [None]
  - ARRHYTHMIA [None]
